FAERS Safety Report 25379157 (Version 1)
Quarter: 2025Q2

REPORT INFORMATION
  Report Type: Spontaneous
  Country: GB (occurrence: GB)
  Receive Date: 20250530
  Receipt Date: 20250530
  Transmission Date: 20250717
  Serious: Yes (Other)
  Sender: MYLAN
  Company Number: None

PATIENT
  Age: 66 Year
  Sex: Female
  Weight: 74 kg

DRUGS (8)
  1. LOPERAMIDE [Suspect]
     Active Substance: LOPERAMIDE
     Indication: Product used for unknown indication
     Dates: start: 20250303, end: 20250305
  2. LOPERAMIDE [Suspect]
     Active Substance: LOPERAMIDE
     Route: 065
     Dates: start: 20250303, end: 20250305
  3. LOPERAMIDE [Suspect]
     Active Substance: LOPERAMIDE
     Route: 065
     Dates: start: 20250303, end: 20250305
  4. LOPERAMIDE [Suspect]
     Active Substance: LOPERAMIDE
     Dates: start: 20250303, end: 20250305
  5. OMEPRAZOLE [Concomitant]
     Active Substance: OMEPRAZOLE
     Indication: Gastrooesophageal reflux disease
  6. OMEPRAZOLE [Concomitant]
     Active Substance: OMEPRAZOLE
     Route: 065
  7. OMEPRAZOLE [Concomitant]
     Active Substance: OMEPRAZOLE
     Route: 065
  8. OMEPRAZOLE [Concomitant]
     Active Substance: OMEPRAZOLE

REACTIONS (3)
  - Presyncope [Recovered/Resolved]
  - Balance disorder [Recovering/Resolving]
  - Loss of consciousness [Recovered/Resolved]

NARRATIVE: CASE EVENT DATE: 20250303
